FAERS Safety Report 6669034-0 (Version None)
Quarter: 2010Q2

REPORT INFORMATION
  Report Type: 
  Country: None (occurrence: None)
  Receive Date: 20100406
  Receipt Date: 20100330
  Transmission Date: 20101027
  Serious: Yes (Other)
  Sender: FDA-Public Use
  Company Number: BE-SANOFI-AVENTIS-2010SA018453

PATIENT
  Age: 78 Year
  Sex: Male

DRUGS (1)
  1. TAXOTERE [Suspect]

REACTIONS (1)
  - ENCEPHALOPATHY [None]
